FAERS Safety Report 6257105-2 (Version None)
Quarter: 2009Q3

REPORT INFORMATION
  Report Type: 
  Country: None (occurrence: None)
  Receive Date: 20090706
  Receipt Date: 20090626
  Transmission Date: 20100115
  Serious: Yes (Other)
  Sender: FDA-Public Use
  Company Number: B0581212A

PATIENT
  Age: 6 Year
  Sex: Male

DRUGS (6)
  1. FLUTIDE [Suspect]
     Indication: ASTHMA
     Dosage: 50MCG TWICE PER DAY
     Route: 055
     Dates: start: 20080701
  2. FLUNASE (JAPAN) [Suspect]
     Indication: DRUG USE FOR UNKNOWN INDICATION
     Dosage: 50MCG PER DAY
     Route: 045
  3. ONON [Suspect]
     Indication: DRUG USE FOR UNKNOWN INDICATION
     Route: 048
  4. ALESION [Suspect]
     Indication: DRUG USE FOR UNKNOWN INDICATION
     Route: 048
  5. MEPTIN [Suspect]
     Indication: DRUG USE FOR UNKNOWN INDICATION
     Route: 055
  6. TRAMAZOLINE HYDROCHLORIDE [Suspect]
     Indication: DRUG USE FOR UNKNOWN INDICATION
     Route: 045

REACTIONS (2)
  - TOOTH DISCOLOURATION [None]
  - TOOTH HYPOPLASIA [None]
